FAERS Safety Report 6443141-X (Version None)
Quarter: 2009Q4

REPORT INFORMATION
  Report Type: 
  Country: None (occurrence: None)
  Receive Date: 20091117
  Receipt Date: 20091112
  Transmission Date: 20100525
  Serious: Yes (Hospitalization)
  Sender: FDA-Public Use
  Company Number: A0817073A

PATIENT
  Age: 3 Month
  Sex: Male

DRUGS (1)
  1. VENTOLIN [Suspect]
     Route: 055
     Dates: start: 20091101

REACTIONS (5)
  - ACCIDENTAL OVERDOSE [None]
  - ADVERSE EVENT [None]
  - INCORRECT ROUTE OF DRUG ADMINISTRATION [None]
  - PNEUMONIA [None]
  - PYREXIA [None]
